FAERS Safety Report 16177518 (Version 9)
Quarter: 2020Q3

REPORT INFORMATION
  Report Type: Other
  Country: BR (occurrence: BR)
  Receive Date: 20190410
  Receipt Date: 20200830
  Transmission Date: 20201102
  Serious: Yes (Other)
  Sender: FDA-Public Use
  Company Number: BR-ROCHE-2296095

PATIENT
  Sex: Male
  Weight: 70 kg

DRUGS (12)
  1. ESBRIET [Suspect]
     Active Substance: PIRFENIDONE
     Route: 048
     Dates: start: 20190325
  2. SIMVASTATIN. [Concomitant]
     Active Substance: SIMVASTATIN
  3. ESBRIET [Suspect]
     Active Substance: PIRFENIDONE
     Indication: IDIOPATHIC PULMONARY FIBROSIS
     Route: 048
     Dates: start: 201903
  4. CARVEDILOL. [Concomitant]
     Active Substance: CARVEDILOL
     Dates: start: 201601
  5. ESBRIET [Suspect]
     Active Substance: PIRFENIDONE
     Dosage: 2 TABLETS IN THE MORNING, 2 TABLETS IN THE EVENING AND AT 10H00 P. M
     Route: 048
     Dates: start: 20190329
  6. ESBRIET [Suspect]
     Active Substance: PIRFENIDONE
     Indication: IDIOPATHIC PULMONARY FIBROSIS
     Route: 048
     Dates: start: 20190322
  7. SIMVASTATIN. [Concomitant]
     Active Substance: SIMVASTATIN
     Route: 048
     Dates: start: 201601
  8. SPIRONOLACTONE. [Concomitant]
     Active Substance: SPIRONOLACTONE
     Route: 048
     Dates: start: 201601
  9. ACETYLSALICYLIC ACID [Concomitant]
     Active Substance: ASPIRIN
  10. FUROSEMIDE. [Concomitant]
     Active Substance: FUROSEMIDE
     Dosage: HALF TABLET A DAY
  11. ESBRIET [Suspect]
     Active Substance: PIRFENIDONE
     Route: 048
  12. CARVEDILOL. [Concomitant]
     Active Substance: CARVEDILOL

REACTIONS (15)
  - Ocular hyperaemia [Unknown]
  - Sluggishness [Not Recovered/Not Resolved]
  - Deafness [Unknown]
  - Influenza [Recovered/Resolved]
  - Dysentery [Unknown]
  - Incorrect dose administered [Unknown]
  - Dyspepsia [Not Recovered/Not Resolved]
  - Asthenia [Unknown]
  - Catarrh [Unknown]
  - Skin discolouration [Recovered/Resolved]
  - Diarrhoea [Unknown]
  - Snoring [Unknown]
  - Ear pain [Unknown]
  - Pain [Unknown]
  - Cough [Unknown]
